FAERS Safety Report 6807852-6 (Version None)
Quarter: 2010Q2

REPORT INFORMATION
  Report Type: 
  Country: None (occurrence: None)
  Receive Date: 20100629
  Receipt Date: 20090115
  Transmission Date: 20101027
  Serious: No
  Sender: FDA-Public Use
  Company Number: US-PFIZER INC-2008100618

PATIENT
  Sex: Male
  Weight: 113.7 kg

DRUGS (9)
  1. TIKOSYN [Suspect]
     Indication: ATRIAL FIBRILLATION
     Dosage: 500 UG, 2X/DAY
     Route: 048
     Dates: start: 20080924
  2. LORTAB [Concomitant]
  3. MONTELUKAST SODIUM [Concomitant]
  4. DIGOXIN [Concomitant]
  5. CARDIZEM [Concomitant]
  6. LIPITOR [Concomitant]
  7. TRICOR [Concomitant]
  8. LISINOPRIL [Concomitant]
  9. WARFARIN SODIUM [Concomitant]

REACTIONS (2)
  - DIARRHOEA [None]
  - HELICOBACTER GASTRITIS [None]
